FAERS Safety Report 8507896-2 (Version None)
Quarter: 2012Q3

REPORT INFORMATION
  Report Type: 
  Country: None (occurrence: None)
  Receive Date: 20120713
  Receipt Date: 20120710
  Transmission Date: 20120928
  Serious: Yes (Other)
  Sender: FDA-Public Use
  Company Number: DE-US-EMD SERONO, INC.-7146597

PATIENT
  Sex: Female

DRUGS (2)
  1. IBUPROFEN [Concomitant]
     Indication: ANTIVIRAL PROPHYLAXIS
  2. REBIF [Suspect]
     Indication: MULTIPLE SCLEROSIS
     Route: 058

REACTIONS (5)
  - NAUSEA [None]
  - HELICOBACTER INFECTION [None]
  - FEAR OF NEEDLES [None]
  - FEELING COLD [None]
  - INFLUENZA LIKE ILLNESS [None]
